FAERS Safety Report 8286415-2 (Version None)
Quarter: 2012Q2

REPORT INFORMATION
  Report Type: 
  Country: None (occurrence: None)
  Receive Date: 20120411
  Receipt Date: 20120411
  Transmission Date: 20120825
  Serious: Yes (Other)
  Sender: FDA-Public Use
  Company Number: None

PATIENT
  Age: 71 Year
  Sex: Female
  Weight: 85.7298 kg

DRUGS (5)
  1. SYNTHROID [Concomitant]
  2. WELLBUTRIN XL [Suspect]
     Indication: DEPRESSION
     Dosage: ONE TAB DAILY
     Dates: start: 20100811
  3. WELLBUTRIN XL [Suspect]
     Indication: DEPRESSION
     Dosage: ONE TAB DAILY
     Dates: start: 20101013
  4. WELLBUTRIN XL [Suspect]
     Indication: DEPRESSION
     Dosage: ONE TAB DAILY
     Dates: start: 20110215
  5. LITHIUM [Concomitant]

REACTIONS (4)
  - HYPERSOMNIA [None]
  - SOMNOLENCE [None]
  - NASAL SEPTAL OPERATION [None]
  - HYPERTENSION [None]
